FAERS Safety Report 6675972-5 (Version None)
Quarter: 2010Q2

REPORT INFORMATION
  Report Type: 
  Country: None (occurrence: None)
  Receive Date: 20100412
  Receipt Date: 20100331
  Transmission Date: 20101027
  Serious: No
  Sender: FDA-Public Use
  Company Number: US-BIOGENIDEC-2010BI011394

PATIENT
  Age: 34 Year
  Sex: Female

DRUGS (2)
  1. TYSABRI [Suspect]
     Indication: MULTIPLE SCLEROSIS
     Route: 042
     Dates: start: 20061026, end: 20070508
  2. TYSABRI [Suspect]
     Route: 042
     Dates: start: 20080715

REACTIONS (3)
  - ASTHENIA [None]
  - BALANCE DISORDER [None]
  - VISION BLURRED [None]
